FAERS Safety Report 7481139-3 (Version None)
Quarter: 2011Q2

REPORT INFORMATION
  Report Type: 
  Country: None (occurrence: None)
  Receive Date: 20110516
  Receipt Date: 20110506
  Transmission Date: 20111010
  Serious: Yes (Hospitalization)
  Sender: FDA-Public Use
  Company Number: CO-GENZYME-CERZ-1002053

PATIENT

DRUGS (1)
  1. CEREZYME [Suspect]
     Indication: GAUCHER'S DISEASE
     Dosage: 60 U/KG, Q4W
     Route: 042
     Dates: start: 20100305

REACTIONS (3)
  - ABDOMINAL PAIN [None]
  - SPLENOMEGALY [None]
  - HEPATOMEGALY [None]
